FAERS Safety Report 8848941 (Version 1)
Quarter: 2012Q4

REPORT INFORMATION
  Report Type: 
  Country: FR (occurrence: FR)
  Receive Date: 20121019
  Receipt Date: 20121019
  Transmission Date: 20130627
  Serious: Yes (Hospitalization)
  Sender: FDA-Public Use
  Company Number: FR-ABBOTT-12P-056-0994768-00

PATIENT
  Age: 10 Year
  Sex: Female

DRUGS (6)
  1. MICROPAKINE [Suspect]
     Indication: PARTIAL SEIZURES
     Route: 048
  2. MICROPAKINE [Suspect]
     Route: 048
     Dates: start: 20120427
  3. MICROPAKINE [Suspect]
     Route: 048
  4. OSPOLOT [Suspect]
     Indication: PARTIAL SEIZURES
     Route: 048
     Dates: start: 201204, end: 201204
  5. OSPOLOT [Suspect]
     Route: 048
     Dates: start: 20120427
  6. OSPOLOT [Suspect]
     Route: 048

REACTIONS (5)
  - Speech disorder [Recovering/Resolving]
  - Aphasia [Unknown]
  - Oppositional defiant disorder [Unknown]
  - Aggression [Unknown]
  - Overdose [None]
